FAERS Safety Report 4574598-7 (Version None)
Quarter: 2005Q1

REPORT INFORMATION
  Report Type: 
  Country: None (occurrence: None)
  Receive Date: 20050208
  Receipt Date: 20040614
  Transmission Date: 20050727
  Serious: No
  Sender: FDA-Public Use
  Company Number: US-GLAXOSMITHKLINE-A0514520A

PATIENT
  Sex: Male

DRUGS (4)
  1. PAXIL [Suspect]
     Dosage: 25MG TWICE PER DAY
     Dates: start: 20020601, end: 20040101
  2. NEURONTIN [Concomitant]
  3. DEPAKOTE [Concomitant]
  4. BENADRYL [Concomitant]

REACTIONS (1)
  - AMNESIA [None]
